FAERS Safety Report 6865044-9 (Version None)
Quarter: 2010Q3

REPORT INFORMATION
  Report Type: 
  Country: None (occurrence: None)
  Receive Date: 20100720
  Receipt Date: 20100706
  Transmission Date: 20110219
  Serious: Yes (Other)
  Sender: FDA-Public Use
  Company Number: APP201000577

PATIENT
  Age: 62 Year
  Sex: Male

DRUGS (2)
  1. FUROSEMIDE [Suspect]
     Indication: BLOOD CALCIUM INCREASED
  2. ALLOPURINOL [Suspect]
     Indication: HYPERURICAEMIA

REACTIONS (6)
  - DECREASED APPETITE [None]
  - EOSINOPHIL PERCENTAGE INCREASED [None]
  - GRANULOMATOUS LIVER DISEASE [None]
  - HAEMOGLOBIN DECREASED [None]
  - HYPERCALCAEMIA [None]
  - WEIGHT DECREASED [None]
